FAERS Safety Report 19105860 (Version 4)
Quarter: 2025Q2

REPORT INFORMATION
  Report Type: Report from Study
  Country: ES (occurrence: ES)
  Receive Date: 20210408
  Receipt Date: 20250626
  Transmission Date: 20250717
  Serious: Yes (Other)
  Sender: AUROBINDO
  Company Number: ES-JUVISE-2021008246

PATIENT
  Age: 74 Year
  Sex: Male

DRUGS (2)
  1. ENALAPRIL [Suspect]
     Active Substance: ENALAPRIL
     Indication: Hypertension
     Route: 065
     Dates: start: 2019
  2. HYDROCHLOROTHIAZIDE [Suspect]
     Active Substance: HYDROCHLOROTHIAZIDE
     Indication: Hypertension
     Route: 065
     Dates: start: 2019

REACTIONS (2)
  - Acute febrile neutrophilic dermatosis [Recovered/Resolved]
  - Neutrophilic dermatosis [Recovered/Resolved]
